FAERS Safety Report 25393561 (Version 2)
Quarter: 2025Q2

REPORT INFORMATION
  Report Type: Report from Study
  Country: BR (occurrence: BR)
  Receive Date: 20250604
  Receipt Date: 20250608
  Transmission Date: 20250716
  Serious: Yes (Hospitalization)
  Sender: JOHNSON AND JOHNSON
  Company Number: BR-JNJFOC-20250524560

PATIENT
  Age: 70 Year
  Sex: Female
  Weight: 61 kg

DRUGS (1)
  1. RYBREVANT [Suspect]
     Active Substance: AMIVANTAMAB-VMJW
     Indication: Non-small cell lung cancer
     Route: 042

REACTIONS (5)
  - Influenza [Unknown]
  - Pneumonia [Not Recovered/Not Resolved]
  - Non-small cell lung cancer [Unknown]
  - Decreased immune responsiveness [Unknown]
  - Blood pressure fluctuation [Unknown]

NARRATIVE: CASE EVENT DATE: 20250501
